FAERS Safety Report 9552737 (Version 3)
Quarter: 2014Q2

REPORT INFORMATION
  Report Type: Spontaneous
  Country: US (occurrence: US)
  Receive Date: 20130925
  Receipt Date: 20140530
  Transmission Date: 20141212
  Serious: No
  Sender: FDA-Public Use
  Company Number: US-PURDUE-USA-2012-0095971

PATIENT
  Age: 35 Year
  Sex: Male

DRUGS (9)
  1. INTERMEZZO [Concomitant]
     Indication: MIDDLE INSOMNIA
     Dosage: 3.5 MG, UNK
     Route: 060
     Dates: start: 201308
  2. MORPHINE SULFATE (SIMILAR TO NDA 19-516) [Suspect]
     Indication: BACK PAIN
     Dosage: 30 MG, BID
     Route: 048
  3. MORPHINE SULFATE (SIMILAR TO NDA 19-516) [Suspect]
     Indication: MENINGITIS
  4. BENTYL [Suspect]
     Indication: IRRITABLE BOWEL SYNDROME
     Dosage: 10 MG, PRN
     Route: 048
  5. PERCOCET                           /00867901/ [Concomitant]
     Indication: BREAKTHROUGH PAIN
  6. NEURONTIN [Concomitant]
     Indication: PRODUCT USED FOR UNKNOWN INDICATION
  7. BACLOFEN [Concomitant]
     Indication: PRODUCT USED FOR UNKNOWN INDICATION
  8. ZANAFLEX [Concomitant]
     Indication: PRODUCT USED FOR UNKNOWN INDICATION
  9. CLONAZEPAM [Concomitant]
     Indication: PRODUCT USED FOR UNKNOWN INDICATION

REACTIONS (6)
  - Irritable bowel syndrome [Unknown]
  - Drug effect increased [Recovered/Resolved]
  - Drug ineffective [Recovered/Resolved]
  - Somnolence [Unknown]
  - Product coating issue [Unknown]
  - Drug tolerance [Unknown]
